FAERS Safety Report 25980561 (Version 1)
Quarter: 2025Q4

REPORT INFORMATION
  Report Type: Spontaneous
  Country: CN (occurrence: CN)
  Receive Date: 20251030
  Receipt Date: 20251030
  Transmission Date: 20260118
  Serious: Yes (Hospitalization)
  Sender: DOUGLAS PHARMACEUTICALS
  Company Number: CN-DOUGLAS PHARMACEUTICALS US-2025DGL00330

PATIENT
  Age: 44 Year
  Sex: Male

DRUGS (7)
  1. CLOZAPINE [Suspect]
     Active Substance: CLOZAPINE
     Indication: Schizophrenia
     Dosage: 300 MG, 1X/DAY
     Dates: start: 2008, end: 20240304
  2. CLOZAPINE [Suspect]
     Active Substance: CLOZAPINE
     Dosage: 325 MG, 1X/DAY
     Dates: start: 20240305, end: 2024
  3. CLOZAPINE [Suspect]
     Active Substance: CLOZAPINE
     Dosage: 12.5 MG, 1X/DAY
     Dates: start: 2024, end: 2024
  4. CLOZAPINE [Suspect]
     Active Substance: CLOZAPINE
     Dosage: 200 MG, 1X/DAY
     Dates: start: 2024, end: 2024
  5. CLOZAPINE [Suspect]
     Active Substance: CLOZAPINE
     Dosage: 450 MG, 1X/DAY
     Dates: start: 2024
  6. SULPIRIDE [Suspect]
     Active Substance: SULPIRIDE
     Dosage: 100 MG, 1X/DAY
     Dates: start: 202312
  7. LORAZEPAM [Concomitant]
     Active Substance: LORAZEPAM
     Dosage: 3 MG, 1X/DAY

REACTIONS (2)
  - Withdrawal catatonia [Recovered/Resolved]
  - Neuroleptic malignant syndrome [Recovered/Resolved]

NARRATIVE: CASE EVENT DATE: 20240301
